FAERS Safety Report 12693642 (Version 2)
Quarter: 2016Q3

REPORT INFORMATION
  Report Type: Spontaneous
  Country: US (occurrence: US)
  Receive Date: 20160829
  Receipt Date: 20160831
  Transmission Date: 20161109
  Serious: No
  Sender: FDA-Public Use
  Company Number: US-BAYER-2016-163744

PATIENT
  Age: 6 Year
  Sex: Male

DRUGS (1)
  1. CHILDREN CLARITIN ALLERGY [Suspect]
     Active Substance: LORATADINE
     Dosage: 1 DF TONIGH

REACTIONS (7)
  - Confusional state [None]
  - Crying [None]
  - Abnormal behaviour [None]
  - Psychomotor hyperactivity [None]
  - Obsessive thoughts [None]
  - Agitation [None]
  - Insomnia [None]

NARRATIVE: CASE EVENT DATE: 20160821
